FAERS Safety Report 8180249-5 (Version None)
Quarter: 2012Q1

REPORT INFORMATION
  Report Type: 
  Country: None (occurrence: None)
  Receive Date: 20120302
  Receipt Date: 20110203
  Transmission Date: 20120608
  Serious: No
  Sender: FDA-Public Use
  Company Number: US-GLAXOSMITHKLINE-A0911683A

PATIENT
  Age: 44 Year
  Sex: Female

DRUGS (6)
  1. PHENERGAN [Concomitant]
  2. PROTONIX [Concomitant]
  3. CLOBETASOL PROPIONATE [Suspect]
     Indication: SYSTEMIC LUPUS ERYTHEMATOSUS
     Route: 061
     Dates: start: 20090101
  4. PANCREASE [Concomitant]
  5. ZOFRAN [Concomitant]
  6. BENTYL [Concomitant]

REACTIONS (1)
  - AMPHETAMINES POSITIVE [None]
